FAERS Safety Report 10217107 (Version 1)
Quarter: 2014Q2

REPORT INFORMATION
  Report Type: Spontaneous
  Country: DE (occurrence: DE)
  Receive Date: 20140604
  Receipt Date: 20140604
  Transmission Date: 20141212
  Serious: Yes (Other)
  Sender: FDA-Public Use
  Company Number: DE-MYLANLABS-2014S1012067

PATIENT
  Age: 1 Day
  Sex: Male
  Weight: 1.78 kg

DRUGS (3)
  1. SERTRALINE [Suspect]
     Indication: BIPOLAR DISORDER
     Dosage: 50 [MG/D ]
     Route: 064
     Dates: start: 20130304, end: 20130810
  2. SEROQUEL [Suspect]
     Indication: BIPOLAR DISORDER
     Dosage: 150 [MG/D ]/ DOSAGE REDUCTION TO 50MG/D BEGINING IN SIXTH MONTH
     Route: 064
     Dates: start: 20121213, end: 20130810
  3. FOLIC ACID [Concomitant]
     Indication: PROPHYLAXIS OF NEURAL TUBE DEFECT
     Dosage: 0.8 [MG/D ]/ DOSAGE REDUCTION TO 0.4MG/D FROM SECOND TRIMENON FROM 4.5. - 34.2. GESTATIONAL WEEK
     Route: 064
     Dates: start: 20130115

REACTIONS (3)
  - Vena cava thrombosis [Not Recovered/Not Resolved]
  - Renal vein thrombosis [Not Recovered/Not Resolved]
  - Foetal exposure during pregnancy [Not Recovered/Not Resolved]
